FAERS Safety Report 23135447 (Version 2)
Quarter: 2023Q4

REPORT INFORMATION
  Report Type: Spontaneous
  Country: US (occurrence: US)
  Receive Date: 20231101
  Receipt Date: 20231109
  Transmission Date: 20240110
  Serious: No
  Sender: FDA-Public Use
  Company Number: US-BAYER-2023A155463

PATIENT
  Sex: Female

DRUGS (2)
  1. VITRAKVI [Suspect]
     Active Substance: LAROTRECTINIB
     Indication: NTRK gene fusion positive
     Dosage: 100 MG
     Route: 048
     Dates: start: 20231020
  2. VITRAKVI [Suspect]
     Active Substance: LAROTRECTINIB
     Indication: Non-small cell lung cancer

REACTIONS (2)
  - Sensitive skin [None]
  - Hypoaesthesia oral [None]

NARRATIVE: CASE EVENT DATE: 20231027
